FAERS Safety Report 6917764-5 (Version None)
Quarter: 2010Q3

REPORT INFORMATION
  Report Type: 
  Country: None (occurrence: None)
  Receive Date: 20100810
  Receipt Date: 20100729
  Transmission Date: 20110219
  Serious: Yes (Other)
  Sender: FDA-Public Use
  Company Number: BR-PFIZER INC-2010095422

PATIENT

DRUGS (1)
  1. XALATAN [Suspect]
     Route: 047

REACTIONS (1)
  - GAMMA-GLUTAMYLTRANSFERASE INCREASED [None]
